FAERS Safety Report 8776327 (Version 2)
Quarter: 2012Q4

REPORT INFORMATION
  Report Type: 
  Country: US (occurrence: US)
  Receive Date: 20120910
  Receipt Date: 20121017
  Transmission Date: 20130627
  Serious: No
  Sender: FDA-Public Use
  Company Number: US-PFIZER INC-2012221449

PATIENT
  Age: 55 Year
  Sex: Female
  Weight: 64.85 kg

DRUGS (15)
  1. SOLU-MEDROL [Suspect]
     Indication: MULTIPLE SCLEROSIS
     Dosage: 1 g, monthly
     Route: 042
     Dates: start: 201003
  2. AVONEX [Suspect]
     Indication: MULTIPLE SCLEROSIS
     Dosage: UNK
     Route: 030
  3. TRAMADOL HYDROCHLORIDE [Suspect]
     Indication: HEADACHE
     Dosage: 50 mg, as needed
     Dates: start: 201209
  4. NEURONTIN [Concomitant]
     Indication: PARAESTHESIA
     Dosage: 800 mg, 3x/day
  5. TRILEPTAL [Concomitant]
     Indication: MUSCLE SPASMS
     Dosage: 300 mg, 2x/day
  6. ZANAFLEX [Concomitant]
     Indication: MUSCLE TIGHTNESS
     Dosage: 4 mg, as needed
  7. ESTRADIOL [Concomitant]
     Indication: MENOPAUSE
     Dosage: UNK, daily
  8. FLUOXETINE [Concomitant]
     Indication: MULTIPLE SCLEROSIS
     Dosage: 20 mg, 2x/day
  9. TOPAMAX [Concomitant]
     Indication: MULTIPLE SCLEROSIS
     Dosage: 50 mg, 3x/day
  10. SANCTURA XR [Concomitant]
     Indication: URINARY INCONTINENCE
     Dosage: 60 mg, daily
  11. BUMETANIDE [Concomitant]
     Indication: DIURETIC THERAPY
     Dosage: 2 mg, daily
  12. BUMETANIDE [Concomitant]
     Indication: HYPERTENSION
  13. PROVIGIL [Concomitant]
     Indication: FATIGUE
     Dosage: 200 mg, daily
  14. NORCO [Concomitant]
     Dosage: 10/325 mg, 4x/day
  15. VITAMIN B12 [Concomitant]
     Dosage: 1 ml, weekly

REACTIONS (2)
  - Headache [Unknown]
  - Drug ineffective [Unknown]
